FAERS Safety Report 6282544-3 (Version None)
Quarter: 2009Q3

REPORT INFORMATION
  Report Type: 
  Country: None (occurrence: None)
  Receive Date: 20090722
  Receipt Date: 20090722
  Transmission Date: 20100115
  Serious: No
  Sender: FDA-Public Use
  Company Number: None

PATIENT
  Age: 64 Year
  Sex: Female

DRUGS (16)
  1. CIPRO [Suspect]
     Dates: start: 20080206, end: 20080210
  2. LEVOFLOXACIN [Concomitant]
  3. LOTREL [Concomitant]
  4. ADVAIR (FLUTICASONE) [Concomitant]
  5. SINGULAIR [Concomitant]
  6. PREDNISONE TAB [Concomitant]
  7. PHENAZOPYRIDIUM [Concomitant]
  8. MELOXICAM [Concomitant]
  9. HYDROCODONE [Concomitant]
  10. NASONEX [Concomitant]
  11. ACIPHEX [Concomitant]
  12. ACTONEL [Concomitant]
  13. GLUCOSAMINE [Concomitant]
  14. CENTRUM SILVER [Concomitant]
  15. CHRONDROITIN [Concomitant]
  16. MAG OX [Concomitant]

REACTIONS (3)
  - HEPATITIS [None]
  - KIDNEY INFECTION [None]
  - LIVER INJURY [None]
